FAERS Safety Report 5062297-7 (Version None)
Quarter: 2006Q3

REPORT INFORMATION
  Report Type: 
  Country: None (occurrence: None)
  Receive Date: 20060721
  Receipt Date: 20060712
  Transmission Date: 20061208
  Serious: Yes (Hospitalization)
  Sender: FDA-Public Use
  Company Number: SP-2006-003104

PATIENT
  Age: 41 Year
  Sex: Male
  Weight: 89 kg

DRUGS (4)
  1. OLMETEC [Suspect]
     Indication: ESSENTIAL HYPERTENSION
     Dosage: 20 MG QD PO
     Route: 048
     Dates: start: 20060501, end: 20060613
  2. VOLTAREN [Suspect]
     Dates: start: 20060608, end: 20060613
  3. SOPROL [Suspect]
     Indication: ESSENTIAL HYPERTENSION
     Dosage: 20 MG DAILY PO
     Route: 048
     Dates: end: 20060611
  4. LODALES [Suspect]
     Indication: HYPERLIPIDAEMIA
     Dosage: 20 MG DAILY PO
     Route: 048
     Dates: end: 20060613

REACTIONS (18)
  - ABDOMINAL PAIN UPPER [None]
  - ANURIA [None]
  - C-REACTIVE PROTEIN INCREASED [None]
  - DIARRHOEA [None]
  - DYSPNOEA [None]
  - HAEMODIALYSIS [None]
  - HEPATIC ENZYME INCREASED [None]
  - HYPERHIDROSIS [None]
  - HYPONATRAEMIA [None]
  - HYPOTENSION [None]
  - LEUKOCYTOSIS [None]
  - PULMONARY OEDEMA [None]
  - PYREXIA [None]
  - RASH [None]
  - RENAL FAILURE ACUTE [None]
  - SEPSIS [None]
  - SYNCOPE VASOVAGAL [None]
  - TROPONIN INCREASED [None]
